FAERS Safety Report 6121881-X (Version None)
Quarter: 2009Q1

REPORT INFORMATION
  Report Type: 
  Country: None (occurrence: None)
  Receive Date: 20090313
  Receipt Date: 20090303
  Transmission Date: 20090719
  Serious: Yes (Other)
  Sender: FDA-Public Use
  Company Number: CA-1168431

PATIENT
  Age: 55 Year
  Sex: Female

DRUGS (1)
  1. MYDRIACYL [Suspect]
     Indication: FUNDOSCOPY
     Dosage: 1 GTT OU OPHTHALMIC
     Route: 047
     Dates: start: 20090115

REACTIONS (1)
  - VISUAL ACUITY REDUCED [None]
